FAERS Safety Report 10049549 (Version 1)
Quarter: 2014Q1

REPORT INFORMATION
  Report Type: Spontaneous
  Country: US (occurrence: None)
  Receive Date: 20140331
  Receipt Date: 20140331
  Transmission Date: 20141002
  Serious: Yes (Disabling)
  Sender: FDA-Public Use
  Company Number: None

PATIENT
  Age: 51 Year
  Sex: Female
  Weight: 50.8 kg

DRUGS (1)
  1. LISINOPRIL .5 MG [Suspect]
     Indication: HYPERTENSION
     Route: 048
     Dates: start: 20130923, end: 20131002

REACTIONS (6)
  - Abdominal pain upper [None]
  - Hypoaesthesia [None]
  - Blood pressure fluctuation [None]
  - Gastric haemorrhage [None]
  - Vomiting [None]
  - Dysgeusia [None]
